FAERS Safety Report 5712948-6 (Version None)
Quarter: 2008Q2

REPORT INFORMATION
  Report Type: 
  Country: None (occurrence: None)
  Receive Date: 20080418
  Receipt Date: 20080410
  Transmission Date: 20081010
  Serious: Yes (Death)
  Sender: FDA-Public Use
  Company Number: 083-C5013-08040748

PATIENT
  Age: 54 Year
  Sex: Male
  Weight: 55 kg

DRUGS (5)
  1. CC-5013  (LENALIDOMIDE)  (CAPSULES) [Suspect]
     Indication: MULTIPLE MYELOMA
     Dosage: 25 MG, DAILY, ORAL
     Route: 048
     Dates: start: 20071206, end: 20080320
  2. DEXAMETHASONE TAB [Concomitant]
  3. LEVOFLOXACIN [Concomitant]
  4. ASPIRIN [Concomitant]
  5. EPO (EPOETIN ALFA) [Concomitant]

REACTIONS (2)
  - CARDIAC DISORDER [None]
  - LUNG DISORDER [None]
